FAERS Safety Report 7752479-5 (Version None)
Quarter: 2011Q3

REPORT INFORMATION
  Report Type: 
  Country: None (occurrence: None)
  Receive Date: 20110915
  Receipt Date: 20110909
  Transmission Date: 20111222
  Serious: Yes (Other)
  Sender: FDA-Public Use
  Company Number: PHHY2011PE80087

PATIENT
  Age: 50 Year
  Sex: Female

DRUGS (3)
  1. ZOMETA [Suspect]
     Indication: BREAST CANCER
     Dosage: 4MG/5ML
  2. DEXAMETHASONE [Concomitant]
     Dosage: 4MG EV
  3. RANITIDINE [Concomitant]
     Dosage: 50MG EV

REACTIONS (6)
  - PERINEAL PAIN [None]
  - CHEST PAIN [None]
  - THROAT IRRITATION [None]
  - PRURITUS GENERALISED [None]
  - HYPERSENSITIVITY [None]
  - DYSPHONIA [None]
